FAERS Safety Report 6018019-6 (Version None)
Quarter: 2008Q4

REPORT INFORMATION
  Report Type: 
  Country: None (occurrence: None)
  Receive Date: 20081223
  Receipt Date: 20081219
  Transmission Date: 20090506
  Serious: Yes (Hospitalization)
  Sender: FDA-Public Use
  Company Number: B0551040A

PATIENT
  Age: 13 Year
  Sex: Female

DRUGS (3)
  1. RELENZA [Suspect]
     Indication: INFLUENZA
     Dosage: 10MG TWICE PER DAY
     Route: 055
     Dates: start: 20081215, end: 20081216
  2. LOBU [Concomitant]
     Indication: INFLUENZA
     Dosage: 60MG PER DAY
     Route: 048
     Dates: start: 20081215, end: 20081216
  3. UNKNOWN DRUG [Concomitant]
     Indication: INFLUENZA
     Dosage: 1500MG PER DAY
     Route: 048
     Dates: start: 20081215, end: 20081216

REACTIONS (2)
  - DELIRIUM [None]
  - DISORIENTATION [None]
